FAERS Safety Report 14964509 (Version 2)
Quarter: 2018Q2

REPORT INFORMATION
  Report Type: Report from Study
  Country: DE (occurrence: DE)
  Receive Date: 20180601
  Receipt Date: 20180619
  Transmission Date: 20180711
  Serious: Yes (Death, Hospitalization, Other)
  Sender: FDA-Public Use
  Company Number: DE-PFIZER INC-8-99210-225A

PATIENT
  Age: 58 Year
  Sex: Female
  Weight: 54 kg

DRUGS (49)
  1. ERYPO (EPOETIN ALFA) [Suspect]
     Active Substance: ERYTHROPOIETIN
     Dosage: 2000 IU, 1X/DAY
     Route: 058
     Dates: start: 19950110, end: 19950110
  2. PASPERTIN /00041902/ [Concomitant]
     Active Substance: METOCLOPRAMIDE HYDROCHLORIDE
     Indication: NAUSEA
     Dosage: UNK, EAR/EYE/NOSE DROPS, SOLUTION
     Route: 048
     Dates: start: 19941228, end: 19941228
  3. NEUPOGEN [Concomitant]
     Active Substance: FILGRASTIM
     Indication: LEUKOPENIA
     Dosage: UNK
     Route: 058
     Dates: start: 19950124, end: 19950124
  4. IMODIUM [Concomitant]
     Active Substance: LOPERAMIDE HYDROCHLORIDE
     Indication: DIARRHOEA
     Dosage: UNK
     Route: 048
     Dates: start: 19950118, end: 19950119
  5. SOLU-DECORTIN-H [Concomitant]
     Active Substance: PREDNISOLONE SODIUM SUCCINATE
     Indication: HYPERSENSITIVITY
     Dosage: UNK
     Route: 042
     Dates: start: 19950117, end: 19950117
  6. ARELIX /00630801/ [Concomitant]
     Indication: HYPERTENSION
     Dosage: 1 DF, 1X/DAY
     Route: 048
     Dates: start: 19941228, end: 19941228
  7. TEMAZEPAM. [Suspect]
     Active Substance: TEMAZEPAM
     Indication: SLEEP DISORDER
     Dosage: UNK UNK, 1X/DAY
     Route: 048
     Dates: start: 19941228, end: 19950113
  8. IMUREK /00001501/ [Suspect]
     Active Substance: AZATHIOPRINE
     Dosage: UNK
     Route: 048
     Dates: start: 19950119, end: 19950119
  9. LASIX [Suspect]
     Active Substance: FUROSEMIDE
     Indication: RENAL FAILURE
     Dosage: 1 DF, 1X/DAY
     Route: 048
     Dates: start: 19950113, end: 19950331
  10. LOPIRIN COR [Concomitant]
     Active Substance: CAPTOPRIL
     Indication: HYPERTENSION
     Dosage: 1 DF, 1X/DAY
     Route: 048
     Dates: start: 19941229, end: 19941229
  11. SODIUM CHLORIDE. [Concomitant]
     Active Substance: SODIUM CHLORIDE
     Indication: HYPONATRAEMIA
     Dosage: UNK
     Route: 042
     Dates: start: 19950117, end: 19950117
  12. ERYPO (EPOETIN ALFA) [Suspect]
     Active Substance: ERYTHROPOIETIN
     Indication: ANAEMIA
     Dosage: 2000 IU, 1X/DAY
     Route: 058
     Dates: start: 19950103, end: 19950103
  13. ERYPO (EPOETIN ALFA) [Suspect]
     Active Substance: ERYTHROPOIETIN
     Dosage: 2000 IU, 1X/DAY
     Route: 058
     Dates: start: 19950105, end: 19950105
  14. PLACEBO [Suspect]
     Active Substance: UNSPECIFIED INGREDIENT
     Dosage: UNK
     Route: 048
     Dates: start: 19950115, end: 19950115
  15. IMUREK /00001501/ [Suspect]
     Active Substance: AZATHIOPRINE
     Indication: SCLERODERMA
     Dosage: UNK
     Route: 048
     Dates: start: 19950113, end: 19950116
  16. PEPDUL [Concomitant]
     Indication: ULCER
     Dosage: 1 DF, 1X/DAY
     Route: 048
     Dates: start: 19950117
  17. SAROTEN [Concomitant]
     Active Substance: AMITRIPTYLINE
     Indication: DEPRESSION
     Route: 048
  18. ZANTAC [Concomitant]
     Active Substance: RANITIDINE HYDROCHLORIDE
     Indication: HYPERSENSITIVITY
     Dosage: UNK
     Route: 042
     Dates: start: 19950117, end: 19950117
  19. TEMGESIC [Concomitant]
     Active Substance: BUPRENORPHINE HYDROCHLORIDE
     Indication: PAIN
     Dosage: UNK
     Route: 060
     Dates: start: 19950124, end: 19950124
  20. ROHYPNOL [Suspect]
     Active Substance: FLUNITRAZEPAM
     Indication: SLEEP DISORDER
     Dosage: 1 DF, 1X/DAY
     Route: 048
     Dates: start: 19950114, end: 19950123
  21. FLUIMUCIL [Suspect]
     Active Substance: ACETYLCYSTEINE
     Indication: COUGH
     Dosage: 3 DF, 1X/DAY
     Route: 048
     Dates: start: 19950117, end: 19950118
  22. BISACODYL. [Suspect]
     Active Substance: BISACODYL
     Indication: CONSTIPATION
     Dosage: UNK
     Route: 054
     Dates: start: 19950115, end: 19950115
  23. ADALAT [Concomitant]
     Active Substance: NIFEDIPINE
     Indication: HYPERTENSION
     Dosage: 1 DF, 1X/DAY
     Route: 048
     Dates: start: 19941228, end: 19941228
  24. TRAMAL [Concomitant]
     Active Substance: TRAMADOL
     Indication: PAIN
     Dosage: UNK, EAR/EYE/NOSE DROPS, SOLUTION
     Route: 048
     Dates: start: 19950118, end: 19950121
  25. NOVALGIN (METAMIZOLE SODIUM) [Suspect]
     Active Substance: METAMIZOLE SODIUM
     Indication: PYREXIA
     Dosage: UNK UNK, 1X/DAY
     Route: 042
     Dates: start: 19941228, end: 19941228
  26. XANEF /00574902/ [Suspect]
     Active Substance: ENALAPRIL MALEATE
     Indication: HYPERTENSION
     Dosage: 1 DF, 1X/DAY
     Route: 048
     Dates: start: 19941230, end: 19950124
  27. METALCAPTASE /00062501/ [Suspect]
     Active Substance: PENICILLAMINE
     Indication: SCLERODERMA
     Dosage: UNK UNK, 1X/DAY
     Route: 048
     Dates: start: 19941229, end: 19950124
  28. ERYPO (EPOETIN ALFA) [Suspect]
     Active Substance: ERYTHROPOIETIN
     Dosage: 2000 IU, 1X/DAY
     Route: 058
     Dates: start: 19950114, end: 19950114
  29. TRENTAL [Suspect]
     Active Substance: PENTOXIFYLLINE
     Indication: CARDIOVASCULAR DISORDER
     Dosage: 1200 MG, 1X/DAY
     Route: 048
     Dates: start: 19950117, end: 19950124
  30. FLUIMUCIL [Suspect]
     Active Substance: ACETYLCYSTEINE
     Dosage: 3 DF, 1X/DAY
     Route: 048
     Dates: start: 19950120, end: 19950331
  31. REMESTAN [Suspect]
     Active Substance: TEMAZEPAM
     Indication: SLEEP DISORDER
     Dosage: 1 DF, 1X/DAY
     Route: 048
     Dates: end: 19950113
  32. BEN-U-RON [Suspect]
     Active Substance: ACETAMINOPHEN
     Indication: PYREXIA
     Dosage: 1 DF, 1X/DAY
     Route: 054
     Dates: start: 19950117, end: 19950117
  33. ISOPTIN /00014301/ [Concomitant]
     Indication: ARRHYTHMIA
     Dosage: 3 DF, 1X/DAY
     Route: 048
     Dates: start: 19941228, end: 19941228
  34. SODIUM BICARBONATE. [Concomitant]
     Active Substance: SODIUM BICARBONATE
     Indication: ACIDOSIS
     Dosage: UNK
     Route: 042
     Dates: start: 19950118, end: 19950118
  35. ERYTHROCINE /00020901/ [Concomitant]
     Active Substance: ERYTHROMYCIN
     Indication: INFECTION
     Dosage: 2 DF, 1X/DAY
     Route: 042
     Dates: start: 19950118, end: 19950118
  36. URBASON /00049601/ [Concomitant]
     Active Substance: METHYLPREDNISOLONE
     Indication: SCLERODERMA
     Route: 048
  37. TELEBRIX /00871502/ [Suspect]
     Active Substance: MEGLUMINE IOXITHALAMATE
     Indication: X-RAY
     Dosage: UNK
     Route: 048
     Dates: start: 19950115, end: 19950115
  38. CALCIUM CITRATE [Concomitant]
     Active Substance: CALCIUM CITRATE
     Indication: METABOLIC ACIDOSIS
     Dosage: 4 DF, 1X/DAY
     Route: 048
     Dates: start: 19950119, end: 19950331
  39. ANTRA /00661201/ [Concomitant]
     Active Substance: OMEPRAZOLE
     Indication: ULCER
     Dosage: 2 DF, 1X/DAY
     Route: 048
     Dates: start: 19950118, end: 19950124
  40. ISOPTIN /00014301/ [Concomitant]
     Dosage: 3 DF, 1X/DAY
     Route: 048
     Dates: start: 19941229, end: 19950124
  41. ASPIRIN /00002701/ [Suspect]
     Active Substance: ASPIRIN
     Indication: ARRHYTHMIA
     Dosage: 1 DF, 1X/DAY, TABLET
     Route: 048
     Dates: start: 19941228, end: 19950331
  42. ERYPO (EPOETIN ALFA) [Suspect]
     Active Substance: ERYTHROPOIETIN
     Dosage: 2000 IU, 1X/DAY
     Route: 058
     Dates: start: 19950107, end: 19950107
  43. TAZOBAC [Suspect]
     Active Substance: PIPERACILLIN SODIUM\TAZOBACTAM SODIUM
     Indication: INFECTION
     Dosage: 2 DF, 1X/DAY
     Route: 042
     Dates: start: 19941228, end: 19950101
  44. AUGMENTIN [Suspect]
     Active Substance: AMOXICILLIN\CLAVULANATE POTASSIUM
     Indication: INFECTION
     Dosage: 3 DF, 1X/DAY
     Route: 048
     Dates: start: 19950117, end: 19950117
  45. ERYPO (EPOETIN ALFA) [Suspect]
     Active Substance: ERYTHROPOIETIN
     Dosage: 2000 IU, 1X/DAY
     Route: 058
     Dates: start: 19950117, end: 19950117
  46. PURSENNIDE /00571901/ [Suspect]
     Active Substance: SENNOSIDES A AND B
     Indication: CONSTIPATION
     Dosage: UNK UNK, ALTERNATE DAY
     Route: 048
     Dates: start: 19950113, end: 19950114
  47. MONO-EMBOLEX [Concomitant]
     Active Substance: CERTOPARIN SODIUM
     Indication: THROMBOSIS PROPHYLAXIS
     Dosage: 1 DF, 1X/DAY
     Route: 058
     Dates: start: 19950331
  48. DIFLUCAN [Concomitant]
     Active Substance: FLUCONAZOLE
     Indication: FUNGAL INFECTION
     Dosage: 200 MG, 1X/DAY
     Route: 048
     Dates: start: 19950120, end: 19950124
  49. TAVEGIL /00137202/ [Concomitant]
     Indication: HYPERSENSITIVITY
     Dosage: UNK
     Route: 042
     Dates: start: 19950117, end: 19950117

REACTIONS (11)
  - Toxic epidermal necrolysis [Fatal]
  - Renal failure [Fatal]
  - Rash [None]
  - Hypoxia [Fatal]
  - Pneumonia [None]
  - Brain injury [Fatal]
  - Leukocytosis [Fatal]
  - Lymphopenia [Fatal]
  - Renal failure [Fatal]
  - Pruritus [None]
  - Stevens-Johnson syndrome [Fatal]

NARRATIVE: CASE EVENT DATE: 19950117
